FAERS Safety Report 4730435-9 (Version None)
Quarter: 2005Q3

REPORT INFORMATION
  Report Type: 
  Country: None (occurrence: None)
  Receive Date: 20050801
  Receipt Date: 20050721
  Transmission Date: 20060218
  Serious: Yes (Hospitalization)
  Sender: FDA-Public Use
  Company Number: US-MERCK-0507USA03416

PATIENT
  Age: 52 Year
  Sex: Female
  Weight: 84 kg

DRUGS (11)
  1. VIOXX [Suspect]
     Indication: PAIN IN EXTREMITY
     Route: 048
     Dates: start: 20020124, end: 20020501
  2. VIOXX [Suspect]
     Indication: BACK PAIN
     Route: 048
     Dates: start: 20020124, end: 20020501
  3. ZESTRIL [Concomitant]
     Route: 065
     Dates: start: 20000301
  4. PROPOXYPHENE HYDROCHLORIDE [Concomitant]
     Route: 065
     Dates: start: 20011101
  5. HYDROCODONE BITARTRATE [Concomitant]
     Route: 065
  6. PREDNISOLONE [Concomitant]
     Route: 065
  7. ALBUTEROL [Concomitant]
     Route: 065
  8. RANITIDINE HYDROCHLORIDE [Concomitant]
     Indication: GASTROOESOPHAGEAL REFLUX DISEASE
     Route: 065
     Dates: start: 20011101
  9. GLUCOPHAGE [Concomitant]
     Indication: DIABETES MELLITUS
     Route: 065
     Dates: start: 19910101, end: 20020301
  10. CIMETIDINE [Concomitant]
     Indication: GASTROOESOPHAGEAL REFLUX DISEASE
     Route: 065
     Dates: start: 19970301
  11. ACETAMINOPHEN AND CODEINE [Concomitant]
     Route: 065
     Dates: start: 19970501, end: 20030101

REACTIONS (12)
  - ANXIETY DISORDER [None]
  - BACTERIAL INFECTION [None]
  - BLOOD CHOLESTEROL INCREASED [None]
  - BREAST CANCER [None]
  - CEREBROVASCULAR ACCIDENT [None]
  - COUGH [None]
  - DEPRESSION [None]
  - EYE INFECTION [None]
  - FUNGAL INFECTION [None]
  - GLAUCOMA [None]
  - HYPERSENSITIVITY [None]
  - INSOMNIA [None]
